FAERS Safety Report 6408112-8 (Version None)
Quarter: 2009Q4

REPORT INFORMATION
  Report Type: 
  Country: None (occurrence: None)
  Receive Date: 20091016
  Receipt Date: 20091002
  Transmission Date: 20100525
  Serious: Yes (Death, Hospitalization)
  Sender: FDA-Public Use
  Company Number: 2009BI032035

PATIENT
  Age: 32 Year
  Sex: Male

DRUGS (6)
  1. ZEVALIN [Suspect]
     Indication: DIFFUSE LARGE B-CELL LYMPHOMA
     Dosage: 1X;IV
     Route: 042
     Dates: start: 20080822, end: 20080822
  2. RITUXIMAB (CON.) [Concomitant]
  3. CYCLOPHOSPHAMIDE (CON.) [Concomitant]
  4. DOXORUBICIN (CON.) [Concomitant]
  5. VINCRISTINE (CON.) [Concomitant]
  6. PREDNISONE (CON.) [Concomitant]

REACTIONS (2)
  - CHRONIC OBSTRUCTIVE PULMONARY DISEASE [None]
  - CONDITION AGGRAVATED [None]
